FAERS Safety Report 6179896-1 (Version None)
Quarter: 2009Q2

REPORT INFORMATION
  Report Type: 
  Country: None (occurrence: None)
  Receive Date: 20090505
  Receipt Date: 20090331
  Transmission Date: 20091009
  Serious: No
  Sender: FDA-Public Use
  Company Number: US-TYCO HEALTHCARE/MALLINCKRODT-T200900768

PATIENT
  Sex: Male

DRUGS (6)
  1. OXYCODONE HCL EXTENDED-RELEASE [Suspect]
     Indication: BREAKTHROUGH PAIN
     Dosage: UNK, PRN
     Dates: start: 20090201, end: 20090301
  2. OXYCODONE HCL [Suspect]
     Indication: BREAKTHROUGH PAIN
     Dosage: UNK, PRN
     Route: 048
     Dates: end: 20091201
  3. OXYCONTIN [Concomitant]
     Indication: BACK PAIN
     Dosage: 2 TABS, Q 12HRS
     Route: 048
  4. XANAX [Concomitant]
  5. OXYDOSE                            /00045601/ [Concomitant]
     Dosage: UNK
     Dates: start: 20081201
  6. OXYCODONE [Concomitant]
     Dosage: UNK
     Dates: start: 20081201

REACTIONS (5)
  - ABDOMINAL DISCOMFORT [None]
  - DRUG EFFECT DECREASED [None]
  - DRUG INEFFECTIVE [None]
  - THERAPEUTIC RESPONSE UNEXPECTED [None]
  - WEIGHT DECREASED [None]
